FAERS Safety Report 7221954-4 (Version None)
Quarter: 2011Q1

REPORT INFORMATION
  Report Type: 
  Country: None (occurrence: None)
  Receive Date: 20110112
  Receipt Date: 20110107
  Transmission Date: 20110831
  Serious: Yes (Hospitalization)
  Sender: FDA-Public Use
  Company Number: B0692613A

PATIENT
  Sex: Male

DRUGS (4)
  1. HYPERTENSION MED [Concomitant]
     Route: 065
  2. CORTICOIDS [Concomitant]
  3. AUGMENTIN [Suspect]
     Indication: RESPIRATORY TRACT CONGESTION
     Route: 048
     Dates: start: 20101126, end: 20101127
  4. PYOSTACINE [Suspect]
     Indication: BRONCHIAL OBSTRUCTION
     Route: 048
     Dates: start: 20101129, end: 20101205

REACTIONS (2)
  - CONDITION AGGRAVATED [None]
  - THROMBOCYTOPENIA [None]
